FAERS Safety Report 24280065 (Version 1)
Quarter: 2024Q3

REPORT INFORMATION
  Report Type: Spontaneous
  Country: FR (occurrence: FR)
  Receive Date: 20240904
  Receipt Date: 20240904
  Transmission Date: 20241017
  Serious: Yes (Hospitalization)
  Sender: AUROBINDO
  Company Number: FR-AFSSAPS-PO2024000872

PATIENT
  Age: 1 Day
  Sex: Male
  Weight: 2.26 kg

DRUGS (5)
  1. QUETIAPINE [Suspect]
     Active Substance: QUETIAPINE
     Indication: Mental disorder
     Dosage: 50 MILLIGRAM, ONCE A DAY
     Route: 065
     Dates: start: 20240114, end: 20240317
  2. OXAZEPAM [Suspect]
     Active Substance: OXAZEPAM
     Indication: Mental disorder
     Dosage: 10 MILLIGRAM, ONCE A DAY
     Route: 065
     Dates: end: 20240317
  3. PAROXETINE [Suspect]
     Active Substance: PAROXETINE
     Indication: Mental disorder
     Dosage: 20 MILLIGRAM, ONCE A DAY
     Route: 065
     Dates: end: 20240317
  4. COCAINE [Suspect]
     Active Substance: COCAINE
     Indication: Product used for unknown indication
     Dosage: NON RENSEIGN?E
     Route: 065
     Dates: end: 20231228
  5. ALCOHOL [Suspect]
     Active Substance: ALCOHOL
     Indication: Product used for unknown indication
     Dosage: NON RENSEIGN?E
     Route: 065
     Dates: end: 20231228

REACTIONS (2)
  - Maternal exposure during pregnancy [Recovered/Resolved]
  - Premature baby [Recovered/Resolved]

NARRATIVE: CASE EVENT DATE: 20230731
